FAERS Safety Report 25226829 (Version 2)
Quarter: 2025Q2

REPORT INFORMATION
  Report Type: Report from Study
  Country: US (occurrence: US)
  Receive Date: 20250422
  Receipt Date: 20250611
  Transmission Date: 20250716
  Serious: Yes (Hospitalization)
  Sender: EISAI
  Company Number: US-Eisai-EC-2025-187721

PATIENT
  Age: 85 Year
  Sex: Male
  Weight: 86.2 kg

DRUGS (4)
  1. ERIBULIN [Suspect]
     Active Substance: ERIBULIN
     Indication: Clear cell renal cell carcinoma
     Dates: start: 20250319, end: 20250319
  2. ERIBULIN [Suspect]
     Active Substance: ERIBULIN
     Dates: start: 20250501, end: 20250507
  3. GEMCITABINE HYDROCHLORIDE [Suspect]
     Active Substance: GEMCITABINE HYDROCHLORIDE
     Indication: Clear cell renal cell carcinoma
     Dates: start: 20250319, end: 20250319
  4. GEMCITABINE HYDROCHLORIDE [Suspect]
     Active Substance: GEMCITABINE HYDROCHLORIDE
     Dates: start: 20250501, end: 20250507

REACTIONS (3)
  - Atrial flutter [Recovered/Resolved with Sequelae]
  - Troponin I increased [Not Recovered/Not Resolved]
  - Dyspnoea [Not Recovered/Not Resolved]

NARRATIVE: CASE EVENT DATE: 20250326
